FAERS Safety Report 8208060-7 (Version None)
Quarter: 2012Q1

REPORT INFORMATION
  Report Type: 
  Country: None (occurrence: None)
  Receive Date: 20120314
  Receipt Date: 20120308
  Transmission Date: 20120608
  Serious: Yes (Hospitalization)
  Sender: FDA-Public Use
  Company Number: US-AMGEN-USASP2011067921

PATIENT
  Age: 42 Year
  Sex: Male

DRUGS (12)
  1. ATENOLOL [Concomitant]
     Dosage: 25 MG, BID
     Dates: start: 20101201
  2. PREDNISONE [Concomitant]
     Dosage: UNK
     Dates: start: 20101201
  3. ENBREL [Suspect]
     Dosage: 50 MG, QWK
     Route: 058
     Dates: start: 20100120, end: 20101220
  4. MULTIVITAMIN                       /00097801/ [Concomitant]
     Dosage: UNK
     Dates: start: 20101201
  5. MULTIHANCE [Concomitant]
     Dosage: 9 ML, UNK
     Route: 042
     Dates: start: 20110412, end: 20110412
  6. ENBREL [Suspect]
     Indication: PSORIATIC ARTHROPATHY
     Dosage: 50 MG, QWK
     Dates: start: 20111201
  7. QUINAPRIL [Concomitant]
     Dosage: 10 MG, QD
     Dates: start: 20101201
  8. IBUPROFEN [Concomitant]
     Dosage: UNK
     Dates: start: 20101201
  9. NEXIUM [Concomitant]
     Dosage: 40 MG, QD
     Dates: start: 20101201
  10. LOVASTATIN [Concomitant]
     Dosage: 20 MG, QD
     Dates: start: 20101201
  11. TYLENOL PM [Concomitant]
     Dosage: UNK
     Dates: start: 20101201
  12. ASPIRIN [Concomitant]
     Dosage: 325 MG, QD
     Dates: start: 20101201

REACTIONS (12)
  - ARNOLD-CHIARI MALFORMATION [None]
  - ERYTHEMA [None]
  - URTICARIA [None]
  - VOMITING [None]
  - DRUG HYPERSENSITIVITY [None]
  - LOSS OF CONSCIOUSNESS [None]
  - AMNESIA [None]
  - CHRONIC SINUSITIS [None]
  - HYPOAESTHESIA [None]
  - INTERVERTEBRAL DISC OPERATION [None]
  - MASTOIDITIS [None]
  - FEMORAL NERVE INJURY [None]
